FAERS Safety Report 20500081 (Version 1)
Quarter: 2022Q1

REPORT INFORMATION
  Report Type: Spontaneous
  Country: RU (occurrence: RU)
  Receive Date: 20220222
  Receipt Date: 20220222
  Transmission Date: 20220423
  Serious: Yes (Other)
  Sender: FDA-Public Use
  Company Number: RU-AMGEN-RUSSP2022026305

PATIENT
  Sex: Male

DRUGS (5)
  1. PANITUMUMAB [Suspect]
     Active Substance: PANITUMUMAB
     Indication: Adenocarcinoma of colon
     Dosage: 6 MILLIGRAM/KILOGRAM, Q2WK
     Route: 065
     Dates: start: 20190411, end: 20191101
  2. PANITUMUMAB [Suspect]
     Active Substance: PANITUMUMAB
     Dosage: UNK UNK, Q2WK (44 COURSES OF MAINTENANCE CHEMOTHERAP)
     Route: 065
     Dates: start: 20191105, end: 20211015
  3. LEUCOVORIN [Suspect]
     Active Substance: LEUCOVORIN
     Indication: Adenocarcinoma of colon
     Dosage: UNK
     Route: 065
     Dates: start: 20190411, end: 20190709
  4. FLUOROURACIL [Suspect]
     Active Substance: FLUOROURACIL
     Indication: Adenocarcinoma of colon
     Dosage: UNK
     Route: 065
     Dates: start: 20190411, end: 20190709
  5. OXALIPLATIN [Suspect]
     Active Substance: OXALIPLATIN
     Indication: Adenocarcinoma of colon
     Dosage: UNK
     Route: 065
     Dates: start: 20190411, end: 20190709

REACTIONS (12)
  - Pulmonary mass [Unknown]
  - Polyneuropathy [Unknown]
  - Sarcoidosis [Unknown]
  - Pneumothorax [Recovered/Resolved]
  - Bronchiectasis [Unknown]
  - Toxicity to various agents [Unknown]
  - Pulmonary granuloma [Unknown]
  - Asthenia [Unknown]
  - Dermatitis acneiform [Unknown]
  - Therapy partial responder [Unknown]
  - Silicosis [Unknown]
  - Benign prostatic hyperplasia [Unknown]

NARRATIVE: CASE EVENT DATE: 20190101
